FAERS Safety Report 8241725-X (Version None)
Quarter: 2012Q1

REPORT INFORMATION
  Report Type: 
  Country: None (occurrence: None)
  Receive Date: 20120328
  Receipt Date: 20120322
  Transmission Date: 20120608
  Serious: Yes (Other)
  Sender: FDA-Public Use
  Company Number: US-PFIZER INC-2012039864

PATIENT
  Sex: Male

DRUGS (5)
  1. PRISTIQ [Suspect]
     Dosage: UNK
  2. EFFEXOR [Suspect]
     Indication: DEPRESSION
     Dosage: 37.5 MG DAILY
     Route: 048
  3. EFFEXOR [Suspect]
     Dosage: 75 MG DAILY
     Route: 048
  4. VISTARIL [Concomitant]
     Indication: AGITATION
  5. VISTARIL [Concomitant]
     Indication: ANXIETY
     Dosage: UNK

REACTIONS (1)
  - CONVULSION [None]
